FAERS Safety Report 14600260 (Version 1)
Quarter: 2018Q1

REPORT INFORMATION
  Report Type: Report from Study
  Country: None (occurrence: US)
  Receive Date: 20180305
  Receipt Date: 20180305
  Transmission Date: 20180509
  Serious: Yes (Other)
  Sender: FDA-Public Use
  Company Number: US-ABBVIE-18K-163-2276471-00

PATIENT
  Age: 87 Year
  Sex: Female
  Weight: 59.02 kg

DRUGS (2)
  1. HUMIRA [Suspect]
     Active Substance: ADALIMUMAB
     Indication: GASTROINTESTINAL DISORDER
     Route: 058
  2. HUMIRA [Suspect]
     Active Substance: ADALIMUMAB
     Indication: COLITIS

REACTIONS (2)
  - Carpal tunnel syndrome [Recovered/Resolved]
  - Post procedural complication [Not Recovered/Not Resolved]

NARRATIVE: CASE EVENT DATE: 20180228
